FAERS Safety Report 18278589 (Version 4)
Quarter: 2020Q4

REPORT INFORMATION
  Report Type: Other
  Country: US (occurrence: US)
  Receive Date: 20200917
  Receipt Date: 20201021
  Transmission Date: 20210113
  Serious: Yes (Hospitalization)
  Sender: FDA-Public Use
  Company Number: US-ROCHE-2679051

PATIENT
  Sex: Female
  Weight: 84.9 kg

DRUGS (13)
  1. XOLAIR [Suspect]
     Active Substance: OMALIZUMAB
     Indication: ASTHMA
     Route: 058
     Dates: start: 20200821
  2. IPRATROPIUM BROMIDE. [Concomitant]
     Active Substance: IPRATROPIUM BROMIDE
     Dosage: 42MCG (0.06%) INTRANASCAL SPRAY, NON-AEROSOL?2 SPRAYS EACH NOSTRIL TID
  3. FLEXERIL [Concomitant]
     Active Substance: CYCLOBENZAPRINE HYDROCHLORIDE
  4. VITAMIN B12 [Concomitant]
     Active Substance: CYANOCOBALAMIN
  5. PROAIR HFA [Concomitant]
     Active Substance: ALBUTEROL SULFATE
     Dosage: 90MCG/ACUTATION INHALATION HFA AEROSOL INHALER?USE AS NEEDED FOR RESCUE
  6. XOLAIR [Suspect]
     Active Substance: OMALIZUMAB
     Indication: PRODUCT USED FOR UNKNOWN INDICATION
     Route: 065
  7. FIORICET [Concomitant]
     Active Substance: ACETAMINOPHEN\BUTALBITAL\CAFFEINE
  8. VIT D [Concomitant]
     Active Substance: VITAMIN D NOS
  9. BREO ELLIPTA [Concomitant]
     Active Substance: FLUTICASONE FUROATE\VILANTEROL TRIFENATATE
     Dosage: 200-25MCG/DOSE INHALATION BLISTER WITH INHALATION DEVICE?1 INHALATION EVERYDAY, RINSE MOUTH AFTER EA
  10. LEVOTHYROXINE. [Concomitant]
     Active Substance: LEVOTHYROXINE
     Route: 050
  11. CHLORPHENIRAMINE MALEATE. [Concomitant]
     Active Substance: CHLORPHENIRAMINE MALEATE
     Dosage: TAKE 2 TABLETS QHS
     Route: 048
  12. ALBUTEROL SULFATE. [Concomitant]
     Active Substance: ALBUTEROL SULFATE
     Dosage: 2.5MG/3ML (0.083%) INHALATION SOLUTION FOR NEBULIZATION?1 UNIT DOSE BY HHN Q 6H AND PRN
  13. EPINEPHRINE. [Concomitant]
     Active Substance: EPINEPHRINE
     Dosage: 0.3MG/0.3ML INJECTION AUTO-INJECTOR
     Route: 030

REACTIONS (7)
  - Vitamin D deficiency [Unknown]
  - Gastrooesophageal reflux disease [Unknown]
  - Cough [Unknown]
  - Hypoaesthesia [Unknown]
  - Hypothyroidism [Unknown]
  - Claustrophobia [Unknown]
  - Hypersensitivity [Unknown]
